FAERS Safety Report 24074839 (Version 1)
Quarter: 2024Q3

REPORT INFORMATION
  Report Type: Spontaneous
  Country: US (occurrence: None)
  Receive Date: 20240710
  Receipt Date: 20240710
  Transmission Date: 20241016
  Serious: Yes (Other)
  Sender: Public
  Company Number: None

PATIENT
  Sex: 0

DRUGS (2)
  1. HYDRALAZINE HYDROCHLORIDE [Suspect]
     Active Substance: HYDRALAZINE HYDROCHLORIDE
  2. FELODIPINE [Suspect]
     Active Substance: FELODIPINE

REACTIONS (1)
  - Dizziness [None]

NARRATIVE: CASE EVENT DATE: 20240626
